FAERS Safety Report 5425994-7 (Version None)
Quarter: 2007Q3

REPORT INFORMATION
  Report Type: 
  Country: None (occurrence: None)
  Receive Date: 20070827
  Receipt Date: 20070824
  Transmission Date: 20080115
  Serious: Yes (Other)
  Sender: FDA-Public Use
  Company Number: DE-BRISTOL-MYERS SQUIBB COMPANY-13888151

PATIENT
  Age: 54 Year
  Sex: Female
  Weight: 70 kg

DRUGS (7)
  1. BUSPAR [Suspect]
     Dosage: ORAL/INTAKE NOT VERIFIED.
     Route: 048
  2. CYMBALTA [Suspect]
     Dosage: ORAL/INTAKE NOT VERIFIED.
     Route: 048
  3. LYRICA [Suspect]
     Dosage: ORAL/INTAKE NOT VERIFIED.
     Route: 048
  4. NEUROCIL [Suspect]
     Route: 048
  5. OMEPRAZOLE [Suspect]
     Dosage: ORAL/INTAKE NOT VERIFIED.
     Route: 048
  6. ROHYPNOL [Suspect]
     Dosage: ORAL/INTAKE NOT VERIFIED.
     Route: 048
  7. ZYPREXA [Suspect]
     Dosage: ORAL/INTAKE NOT VERIFIED.
     Route: 048

REACTIONS (3)
  - COMA [None]
  - INCORRECT DOSE ADMINISTERED [None]
  - SUICIDE ATTEMPT [None]
